FAERS Safety Report 7479225-7 (Version None)
Quarter: 2011Q2

REPORT INFORMATION
  Report Type: 
  Country: None (occurrence: None)
  Receive Date: 20110513
  Receipt Date: 20110506
  Transmission Date: 20111010
  Serious: Yes (Other)
  Sender: FDA-Public Use
  Company Number: A0927168A

PATIENT
  Age: 54 Year
  Sex: Male
  Weight: 89.5 kg

DRUGS (6)
  1. GLUCOPHAGE [Concomitant]
  2. ALTACE [Concomitant]
  3. GLIPIZIDE [Concomitant]
  4. LOTREL [Concomitant]
     Dates: end: 20040401
  5. ZOCOR [Concomitant]
  6. AVANDIA [Suspect]
     Dosage: 8MG PER DAY
     Route: 048

REACTIONS (2)
  - CORONARY ARTERY DISEASE [None]
  - MYOCARDIAL INFARCTION [None]
